FAERS Safety Report 8008502-6 (Version None)
Quarter: 2011Q4

REPORT INFORMATION
  Report Type: 
  Country: None (occurrence: None)
  Receive Date: 20111227
  Receipt Date: 20111219
  Transmission Date: 20120403
  Serious: Yes (Hospitalization)
  Sender: FDA-Public Use
  Company Number: DK-TEVA-314272ISR

PATIENT
  Sex: Female
  Weight: 47.99 kg

DRUGS (17)
  1. SULFAMETHOXAZOLE [Concomitant]
     Dosage: DOSAGE FORM: UNSPECIFIED
     Route: 065
     Dates: end: 20110915
  2. METOCLOPRAMIDE [Concomitant]
     Dosage: DOSAGE FORM: UNSPECIFIED
     Route: 065
     Dates: end: 20110915
  3. PREDNISONE [Suspect]
     Indication: DIFFUSE LARGE B-CELL LYMPHOMA
     Dosage: DOSAGE FORM: UNSPECIFIED
     Route: 048
     Dates: start: 20110913
  4. PREDNISONE [Suspect]
     Dosage: DOSAGE FORM: UNSPECIFIED
     Route: 048
     Dates: start: 20110911
  5. NEUPOGEN [Suspect]
     Indication: DIFFUSE LARGE B-CELL LYMPHOMA
     Dosage: DOSAGE FORM: SOLUTION FOR INJECTION
     Route: 058
     Dates: start: 20110907
  6. COTRIMOXAZOL AL ^ALIUD PHARMA^ [Concomitant]
     Dosage: DOSAGE FORM: UNSPECIFIED
     Route: 065
  7. VINCRISTINE [Suspect]
     Indication: DIFFUSE LARGE B-CELL LYMPHOMA
     Dosage: DOSAGE FORM: UNKNOWN
     Route: 042
     Dates: start: 20110906
  8. PREDNISONE [Suspect]
     Dosage: DOSAGE FORM: UNKNOWN
     Route: 042
     Dates: start: 20110906
  9. METFORMIN [Concomitant]
     Dosage: DOSAGE FORM: UNSPECIFIED
     Route: 065
     Dates: start: 20110908, end: 20110915
  10. VALACICLOVIR [Concomitant]
     Dosage: DOSAGE FORM: UNSPECIFIED
     Route: 065
     Dates: end: 20110915
  11. CARBASALATE CALCIUM [Concomitant]
     Dosage: DOSAGE FORM: UNSPECIFIED
     Route: 065
     Dates: start: 20000101, end: 20110915
  12. DOXORUBICIN HCL [Suspect]
     Indication: DIFFUSE LARGE B-CELL LYMPHOMA
     Dosage: DOSAGE FORM: LIPOSOME INJECTION
     Route: 042
     Dates: start: 20110906
  13. PREDNISONE [Suspect]
     Dosage: DOSAGE FORM: UNSPECIFIED
     Route: 048
     Dates: start: 20110912
  14. MACROGOL [Concomitant]
     Dosage: DOSAGE FORM: UNSPECIFIED
     Route: 065
     Dates: start: 20110901, end: 20110915
  15. GRANISETRON [Concomitant]
     Dosage: DOSAGE FORM: UNSPECIFIED
     Route: 065
     Dates: start: 20110912, end: 20110915
  16. PREDNISONE [Suspect]
     Dosage: DOSAGE FORM: UNSPECIFIED
     Route: 048
     Dates: start: 20110901
  17. ESOMEPRAZOLE [Concomitant]
     Dosage: DOSAGE FORM: UNSPECIFIED
     Route: 065
     Dates: start: 20090101, end: 20110915

REACTIONS (2)
  - HYPOPHOSPHATAEMIA [None]
  - MUSCULAR WEAKNESS [None]
